FAERS Safety Report 10216858 (Version 1)
Quarter: 2014Q2

REPORT INFORMATION
  Report Type: Spontaneous
  Country: DE (occurrence: DE)
  Receive Date: 20140604
  Receipt Date: 20140604
  Transmission Date: 20141212
  Serious: Yes (Other)
  Sender: FDA-Public Use
  Company Number: DE-ACTAVIS-2014-11531

PATIENT
  Age: 29 Year
  Sex: Female

DRUGS (2)
  1. QUETIAPINE (UNKNOWN) [Suspect]
     Indication: SCHIZOPHRENIA, PARANOID TYPE
     Dosage: UNK
     Route: 048
     Dates: start: 20130719, end: 20130719
  2. QUETIAPINE (UNKNOWN) [Suspect]
     Indication: SUICIDAL IDEATION
     Dosage: 300 MG, DAILY
     Route: 048

REACTIONS (6)
  - Convulsion [Recovered/Resolved]
  - Affect lability [Recovered/Resolved]
  - Delusion [Recovered/Resolved]
  - Food aversion [Recovered/Resolved]
  - Somnolence [Recovered/Resolved]
  - Hostility [Recovered/Resolved]
